FAERS Safety Report 10245054 (Version 1)
Quarter: 2014Q2

REPORT INFORMATION
  Report Type: Spontaneous
  Country: US (occurrence: US)
  Receive Date: 20140618
  Receipt Date: 20140618
  Transmission Date: 20141212
  Serious: No
  Sender: FDA-Public Use
  Company Number: US-GALDERMA-US14001289

PATIENT
  Age: 51 Year
  Sex: Female

DRUGS (7)
  1. MIRVASO (BRIMONIDINE) TOPICAL GEL, 0.33% [Suspect]
     Indication: ROSACEA
     Dosage: 0.33%
     Route: 061
     Dates: start: 20140405, end: 20140408
  2. ACZONE (DAPSONE) GEL 5% [Concomitant]
     Indication: ACNE
     Dosage: 5%
     Route: 061
     Dates: start: 20140305
  3. FINACEA 15% [Concomitant]
     Indication: ROSACEA
     Dosage: 15%
     Route: 061
  4. CERAVE FOAMING FACIAL CLEANSER [Concomitant]
     Indication: THERAPEUTIC SKIN CARE TOPICAL
     Route: 061
     Dates: start: 20120101
  5. CERAVE FACIAL MOISTURIZING LOTION [Concomitant]
     Indication: DRY SKIN PROPHYLAXIS
     Route: 061
  6. MONODOX [Concomitant]
     Indication: ACNE
     Dosage: 100 MG
     Route: 048
     Dates: start: 20140305
  7. EYELINER AND MASCARA [Concomitant]
     Route: 061

REACTIONS (5)
  - Condition aggravated [Recovered/Resolved]
  - Rebound effect [Recovered/Resolved]
  - Pruritus [Recovered/Resolved]
  - Flushing [Recovered/Resolved]
  - Skin warm [Recovered/Resolved]
